FAERS Safety Report 16816680 (Version 1)
Quarter: 2019Q4

REPORT INFORMATION
  Report Type: Spontaneous
  Country: US (occurrence: US)
  Receive Date: 20190917
  Receipt Date: 20190917
  Transmission Date: 20200122
  Serious: Yes (Disabling)
  Sender: FDA-Public Use
  Company Number: None

PATIENT
  Age: 70 Year
  Sex: Female
  Weight: 59.85 kg

DRUGS (7)
  1. GLIMEPIRIDE. [Concomitant]
     Active Substance: GLIMEPIRIDE
  2. COENZYME Q10 [Concomitant]
     Active Substance: UBIDECARENONE
  3. BERBERINE [Concomitant]
     Active Substance: BERBERINE
  4. JARDIANCE [Suspect]
     Active Substance: EMPAGLIFLOZIN
     Indication: TYPE 2 DIABETES MELLITUS
     Dosage: ?          QUANTITY:1 TABLET(S);?
     Route: 048
  5. METFORMIN [Concomitant]
     Active Substance: METFORMIN HYDROCHLORIDE
  6. MAGNESIUM CITRATE. [Concomitant]
     Active Substance: MAGNESIUM CITRATE
  7. VITAMIN D [Concomitant]
     Active Substance: VITAMIN D NOS

REACTIONS (8)
  - Middle insomnia [None]
  - Eyelid ptosis [None]
  - Myalgia [None]
  - Joint swelling [None]
  - Muscle spasms [None]
  - Incontinence [None]
  - Peripheral swelling [None]
  - Muscular weakness [None]

NARRATIVE: CASE EVENT DATE: 20190430
